FAERS Safety Report 4559647-4 (Version None)
Quarter: 2005Q1

REPORT INFORMATION
  Report Type: 
  Country: None (occurrence: None)
  Receive Date: 20050113
  Receipt Date: 20040913
  Transmission Date: 20050727
  Serious: Yes (Other)
  Sender: FDA-Public Use
  Company Number: 380500

PATIENT
  Sex: Male

DRUGS (2)
  1. FUZEON [Suspect]
     Indication: HIV INFECTION
     Dosage: 90 MG 2 PER DAY SUBCUTANEOUS
     Route: 058
     Dates: start: 20040910, end: 20040915
  2. ANTIRETROVIRALS (ANTIRETROVIRALS) [Concomitant]

REACTIONS (6)
  - CONTUSION [None]
  - FATIGUE [None]
  - INJECTION [None]
  - INJECTION SITE MASS [None]
  - INJECTION SITE REACTION [None]
  - PAIN [None]
